FAERS Safety Report 11859925 (Version 1)
Quarter: 2015Q4

REPORT INFORMATION
  Report Type: Report from Study
  Country: KR (occurrence: KR)
  Receive Date: 20151222
  Receipt Date: 20151222
  Transmission Date: 20160305
  Serious: Yes (Hospitalization)
  Sender: FDA-Public Use
  Company Number: KR-OTSUKA-2015_016905

PATIENT
  Age: 75 Year
  Sex: Female

DRUGS (4)
  1. CONIEL [Concomitant]
     Active Substance: BENIDIPINE HYDROCHLORIDE
     Indication: HYPERTENSION
     Dosage: 0.5 MG, UNK
     Route: 065
     Dates: start: 20151019, end: 20151211
  2. GLIMEL [Concomitant]
     Indication: DIABETES MELLITUS
     Dosage: 8 MG, UNK
     Route: 065
     Dates: start: 20151019, end: 20151209
  3. BLINDED *ASPIRIN [Suspect]
     Active Substance: ASPIRIN
     Indication: CEREBRAL SMALL VESSEL ISCHAEMIC DISEASE
     Dosage: UNK
     Route: 048
     Dates: start: 20151019, end: 20151209
  4. BLINDED CILOSTAZOL [Suspect]
     Active Substance: CILOSTAZOL
     Indication: CEREBRAL SMALL VESSEL ISCHAEMIC DISEASE
     Dosage: UNK
     Route: 048
     Dates: start: 20151019, end: 20151209

REACTIONS (1)
  - Fracture [Not Recovered/Not Resolved]

NARRATIVE: CASE EVENT DATE: 20151210
